FAERS Safety Report 9063921 (Version 2)
Quarter: 2013Q1

REPORT INFORMATION
  Report Type: Spontaneous
  Country: FR (occurrence: FR)
  Receive Date: 20130213
  Receipt Date: 20130222
  Transmission Date: 20140127
  Serious: Yes (Hospitalization)
  Sender: FDA-Public Use
  Company Number: FR-ROCHE-1190389

PATIENT
  Age: 89 Year
  Sex: Female

DRUGS (2)
  1. ROCEPHINE [Suspect]
     Indication: ERYSIPELAS
     Route: 065
     Dates: start: 20130110, end: 20130114
  2. PREVISCAN [Suspect]
     Indication: ATRIAL FIBRILLATION
     Route: 048
     Dates: end: 20130115

REACTIONS (2)
  - Retroperitoneal haematoma [Recovered/Resolved]
  - Anaemia [Recovered/Resolved]
